FAERS Safety Report 7439393-X (Version None)
Quarter: 2011Q2

REPORT INFORMATION
  Report Type: 
  Country: None (occurrence: None)
  Receive Date: 20110427
  Receipt Date: 20110415
  Transmission Date: 20111010
  Serious: Yes (Other)
  Sender: FDA-Public Use
  Company Number: US-JNJFOC-20110407665

PATIENT
  Sex: Female
  Weight: 99.79 kg

DRUGS (1)
  1. DURAGESIC-50 [Suspect]
     Indication: PAIN
     Route: 062

REACTIONS (5)
  - NASAL CAVITY CANCER [None]
  - HYPERHIDROSIS [None]
  - ERYTHEMA [None]
  - MYOCARDIAL INFARCTION [None]
  - TREATMENT NONCOMPLIANCE [None]
